FAERS Safety Report 11776970 (Version 1)
Quarter: 2015Q4

REPORT INFORMATION
  Report Type: Spontaneous
  Country: US (occurrence: None)
  Receive Date: 20151124
  Receipt Date: 20151124
  Transmission Date: 20160304
  Serious: Yes (Disabling, Other)
  Sender: FDA-Public Use
  Company Number: None

PATIENT
  Age: 61 Year
  Sex: Female
  Weight: 58.97 kg

DRUGS (2)
  1. CEPHALEXIN. [Suspect]
     Active Substance: CEPHALEXIN
     Indication: URINARY TRACT INFECTION
     Route: 048
  2. GLYCEMIC MANAGER [Concomitant]

REACTIONS (3)
  - Pain in extremity [None]
  - Paraesthesia [None]
  - Myalgia [None]

NARRATIVE: CASE EVENT DATE: 20151016
